FAERS Safety Report 25498281 (Version 4)
Quarter: 2025Q3

REPORT INFORMATION
  Report Type: Report from Study
  Country: CA (occurrence: CA)
  Receive Date: 20250701
  Receipt Date: 20250806
  Transmission Date: 20251020
  Serious: Yes (Other)
  Sender: TAKEDA
  Company Number: CA-TAKEDA-2025TUS048453

PATIENT
  Age: 28 Year
  Sex: Female

DRUGS (2)
  1. VEDOLIZUMAB [Suspect]
     Active Substance: VEDOLIZUMAB
     Indication: Crohn^s disease
  2. VEDOLIZUMAB [Suspect]
     Active Substance: VEDOLIZUMAB
     Dosage: 300 MILLIGRAM, Q4WEEKS
     Dates: start: 20250703, end: 20250703

REACTIONS (14)
  - Crohn^s disease [Not Recovered/Not Resolved]
  - Uveitis [Unknown]
  - Drug ineffective [Unknown]
  - Faeces soft [Unknown]
  - Diarrhoea [Unknown]
  - Aphthous ulcer [Unknown]
  - Erythema nodosum [Unknown]
  - Off label use [Unknown]
  - Sinus disorder [Not Recovered/Not Resolved]
  - Eye pain [Not Recovered/Not Resolved]
  - Abdominal pain [Unknown]
  - Malaise [Unknown]
  - Arthralgia [Unknown]
  - Influenza [Not Recovered/Not Resolved]

NARRATIVE: CASE EVENT DATE: 20250703
